FAERS Safety Report 12934747 (Version 2)
Quarter: 2017Q2

REPORT INFORMATION
  Report Type: Report from Study
  Country: SA (occurrence: SA)
  Receive Date: 20161111
  Receipt Date: 20170403
  Transmission Date: 20170830
  Serious: Yes (Other)
  Sender: FDA-Public Use
  Company Number: SA-BRISTOL-MYERS SQUIBB COMPANY-BMS-2016-094286

PATIENT
  Age: 55 Year
  Sex: Female

DRUGS (1)
  1. NIVOLUMAB [Suspect]
     Active Substance: NIVOLUMAB
     Indication: HEAD AND NECK CANCER
     Dosage: UNK
     Route: 065

REACTIONS (7)
  - Dyspnoea [Unknown]
  - Asthenia [Unknown]
  - Pain [Unknown]
  - Rash [Unknown]
  - Fatigue [Unknown]
  - Myocardial infarction [Unknown]
  - Product use in unapproved indication [Unknown]
